FAERS Safety Report 9223326 (Version 2)
Quarter: 2013Q2

REPORT INFORMATION
  Report Type: Spontaneous
  Country: US (occurrence: US)
  Receive Date: 20130410
  Receipt Date: 20130423
  Transmission Date: 20140414
  Serious: Yes (Hospitalization, Other)
  Sender: FDA-Public Use
  Company Number: US-PFIZER INC-2013109834

PATIENT
  Age: 49 Year
  Sex: Female
  Weight: 100 kg

DRUGS (10)
  1. XANAX [Suspect]
     Indication: ANXIETY
     Dosage: UNK, AS NEEDED
     Dates: end: 20130126
  2. ZOLOFT [Suspect]
     Indication: ANXIETY
     Dosage: UNK
     Dates: start: 20130122, end: 201301
  3. HYDROXYZINE PAMOATE [Suspect]
     Indication: ANXIETY
     Dosage: 25 MG, 3X/DAY
     Dates: start: 20130218, end: 2013
  4. HYDROXYZINE PAMOATE [Suspect]
     Indication: CONVULSION
  5. PHENYTOIN SODIUM [Suspect]
     Indication: ANXIETY
     Dosage: UNK,, DAILY
     Dates: start: 20130218, end: 2013
  6. VENLAFAXINE ER [Suspect]
     Indication: CONVULSION
     Dosage: 37.5 MG DAILY
     Dates: start: 20130218, end: 2013
  7. VENLAFAXINE ER [Suspect]
     Indication: ANXIETY
  8. SERTRALINE [Suspect]
     Indication: ANXIETY
     Dosage: 50 MG DAILY
     Dates: start: 20130218, end: 2013
  9. CLONAZEPAM [Suspect]
     Indication: ANXIETY
     Dosage: 0.5 MG, 2X/DAY
  10. LOSARTAN [Concomitant]
     Indication: BLOOD PRESSURE ABNORMAL
     Dosage: SPLITTING ^50/12.5^MG TABLET INTO HALF DAILY

REACTIONS (10)
  - Mental impairment [Recovering/Resolving]
  - Rash [Recovering/Resolving]
  - Feeling abnormal [Recovering/Resolving]
  - Dizziness [Recovering/Resolving]
  - Headache [Recovering/Resolving]
  - Confusional state [Recovering/Resolving]
  - Convulsion [Unknown]
  - Somnolence [Unknown]
  - Malaise [Unknown]
  - Off label use [Recovered/Resolved]
